FAERS Safety Report 19128329 (Version 1)
Quarter: 2021Q2

REPORT INFORMATION
  Report Type: Spontaneous
  Country: AR (occurrence: AR)
  Receive Date: 20210413
  Receipt Date: 20210413
  Transmission Date: 20210717
  Serious: Yes (Life-Threatening)
  Sender: FDA-Public Use
  Company Number: AR-ASTRAZENECA-2021A295859

PATIENT
  Sex: Female

DRUGS (1)
  1. FREVIA [Suspect]
     Active Substance: BUDESONIDE\FORMOTEROL
     Dosage: UNKNOWN UNKNOWN
     Route: 055

REACTIONS (2)
  - Asthmatic crisis [Not Recovered/Not Resolved]
  - Mental disorder [Unknown]

NARRATIVE: CASE EVENT DATE: 2014
